FAERS Safety Report 16292084 (Version 1)
Quarter: 2019Q2

REPORT INFORMATION
  Report Type: Other
  Country: US (occurrence: US)
  Receive Date: 20190509
  Receipt Date: 20190509
  Transmission Date: 20190711
  Serious: Yes (Hospitalization)
  Sender: FDA-Public Use
  Company Number: US-ALKERMES INC.-ALK-2018-002537

PATIENT
  Age: 36 Year
  Sex: Female
  Weight: 63 kg

DRUGS (1)
  1. VIVITROL [Suspect]
     Active Substance: NALTREXONE
     Indication: ALCOHOLISM
     Dosage: 380 MG, QMO
     Route: 030
     Dates: start: 20171018, end: 20171018

REACTIONS (3)
  - Ecchymosis [Unknown]
  - Pain in extremity [Unknown]
  - Movement disorder [Unknown]

NARRATIVE: CASE EVENT DATE: 20171018
